FAERS Safety Report 7597024-2 (Version None)
Quarter: 2011Q3

REPORT INFORMATION
  Report Type: 
  Country: None (occurrence: None)
  Receive Date: 20110708
  Receipt Date: 20110624
  Transmission Date: 20111222
  Serious: Yes (Death)
  Sender: FDA-Public Use
  Company Number: US-MYLANLABS-2011S1011352

PATIENT
  Age: 83 Year
  Sex: Male

DRUGS (4)
  1. LANOXIN [Concomitant]
     Indication: CARDIAC DISORDER
  2. MIRTAZAPINE [Suspect]
     Indication: DECREASED APPETITE
     Dosage: 1-2 TAB QHS
     Route: 048
     Dates: start: 20110418, end: 20110420
  3. MIRTAZAPINE [Suspect]
     Dosage: 1-2 TAB QHS
     Route: 048
     Dates: start: 20110418, end: 20110420
  4. ALBUTEROL INHALER [Concomitant]
     Indication: CHRONIC OBSTRUCTIVE PULMONARY DISEASE

REACTIONS (12)
  - PYREXIA [None]
  - HALLUCINATION [None]
  - CONFUSIONAL STATE [None]
  - DISTURBANCE IN ATTENTION [None]
  - STOMATITIS [None]
  - BALANCE DISORDER [None]
  - LUNG NEOPLASM MALIGNANT [None]
  - AMNESIA [None]
  - CHILLS [None]
  - CHEILITIS [None]
  - ASTHENIA [None]
  - HYPERREFLEXIA [None]
